FAERS Safety Report 25191620 (Version 1)
Quarter: 2025Q2

REPORT INFORMATION
  Report Type: Spontaneous
  Country: US (occurrence: None)
  Receive Date: 20250411
  Receipt Date: 20250411
  Transmission Date: 20250717
  Serious: Yes (Other)
  Sender: FDA-CTU
  Company Number: None

PATIENT
  Age: 61 Year
  Sex: Male

DRUGS (1)
  1. XTANDI [Suspect]
     Active Substance: ENZALUTAMIDE
     Dates: start: 20241030, end: 20250411

REACTIONS (2)
  - Hypertransaminasaemia [None]
  - Therapy cessation [None]

NARRATIVE: CASE EVENT DATE: 20250411
